FAERS Safety Report 10070125 (Version 3)
Quarter: 2014Q3

REPORT INFORMATION
  Report Type: Spontaneous
  Country: AU (occurrence: AU)
  Receive Date: 20140410
  Receipt Date: 20140710
  Transmission Date: 20150326
  Serious: Yes (Life-Threatening)
  Sender: FDA-Public Use
  Company Number: AU-PFIZER INC-2014095848

PATIENT
  Sex: Female

DRUGS (2)
  1. XANAX [Suspect]
     Active Substance: ALPRAZOLAM
     Route: 064
  2. QUETIAPINE FUMARATE. [Suspect]
     Active Substance: QUETIAPINE FUMARATE
     Dosage: 250 MG, 1X/DAY
     Route: 064

REACTIONS (4)
  - Drug withdrawal syndrome neonatal [Recovered/Resolved]
  - Maternal exposure during pregnancy [Recovered/Resolved]
  - Hypoglycaemia neonatal [Recovered/Resolved]
  - Hypothermia neonatal [Recovered/Resolved]

NARRATIVE: CASE EVENT DATE: 20120207
